FAERS Safety Report 10057601 (Version 2)
Quarter: 2014Q2

REPORT INFORMATION
  Report Type: Spontaneous
  Country: CA (occurrence: CA)
  Receive Date: 20140404
  Receipt Date: 20140501
  Transmission Date: 20141212
  Serious: Yes (Other)
  Sender: FDA-Public Use
  Company Number: CA-PFIZER INC-2014088427

PATIENT
  Sex: Female

DRUGS (3)
  1. XALATAN [Suspect]
     Dosage: 1 GTT IN BOTH EYES, 1X/DAY AT BEDTIME
     Route: 047
     Dates: end: 201402
  2. XALATAN [Suspect]
     Dosage: 1 GTT IN BOTH EYES, 1X/DAY AT BEDTIME
     Route: 047
     Dates: start: 2014, end: 201403
  3. COSOPT [Concomitant]
     Dosage: IN ONE EYE ONLY, TWICE DAILY
     Route: 047

REACTIONS (3)
  - Corneal infection [Recovered/Resolved]
  - Reaction to preservatives [Recovered/Resolved]
  - Product quality issue [Recovered/Resolved]
